FAERS Safety Report 5823325-1 (Version None)
Quarter: 2008Q3

REPORT INFORMATION
  Report Type: 
  Country: None (occurrence: None)
  Receive Date: 20080725
  Receipt Date: 20070615
  Transmission Date: 20090109
  Serious: Yes (Hospitalization, Other)
  Sender: FDA-Public Use
  Company Number: US-AMGEN-KDL229851

PATIENT
  Sex: Female
  Weight: 74.9 kg

DRUGS (17)
  1. PROCRIT [Suspect]
     Indication: RENAL FAILURE CHRONIC
     Dates: start: 20070101, end: 20070601
  2. NAMENDA [Concomitant]
  3. SEROQUEL [Concomitant]
  4. MIRALAX [Concomitant]
  5. CLONIDINE [Concomitant]
  6. ALLOPURINOL [Concomitant]
  7. SYNTHROID [Concomitant]
  8. ADVAIR DISKUS 100/50 [Concomitant]
     Route: 055
  9. ARICEPT [Concomitant]
  10. REGLAN [Concomitant]
  11. PROTONIX [Concomitant]
  12. HYDRALAZINE HCL [Concomitant]
  13. LABETALOL HCL [Concomitant]
  14. INSULIN [Concomitant]
  15. ASPIRIN [Concomitant]
  16. OXYGEN [Concomitant]
  17. NOVOLOG [Concomitant]

REACTIONS (1)
  - CEREBROVASCULAR ACCIDENT [None]
